FAERS Safety Report 17693886 (Version 1)
Quarter: 2020Q2

REPORT INFORMATION
  Report Type: Spontaneous
  Country: JP (occurrence: JP)
  Receive Date: 20200422
  Receipt Date: 20200422
  Transmission Date: 20200714
  Serious: Yes (Other)
  Sender: FDA-Public Use
  Company Number: JP-009507513-2004JPN001318J

PATIENT
  Sex: Female

DRUGS (1)
  1. SINGULAIR [Suspect]
     Active Substance: MONTELUKAST SODIUM
     Indication: ASTHMA
     Dosage: UNK
     Route: 048

REACTIONS (5)
  - Syncope [Recovered/Resolved]
  - Hand fracture [Unknown]
  - Syncope [Unknown]
  - Syncope [Unknown]
  - Patella fracture [Unknown]

NARRATIVE: CASE EVENT DATE: 2011
